FAERS Safety Report 14798705 (Version 1)
Quarter: 2018Q2

REPORT INFORMATION
  Report Type: Other
  Country: CH (occurrence: CH)
  Receive Date: 20180424
  Receipt Date: 20180424
  Transmission Date: 20180711
  Serious: Yes (Death)
  Sender: FDA-Public Use
  Company Number: CH-DEXPHARM-20180266

PATIENT
  Age: 15 Year

DRUGS (5)
  1. METHYLPHENIDATE. [Suspect]
     Active Substance: METHYLPHENIDATE
  2. SALICYLATE [Suspect]
     Active Substance: SALICYLIC ACID
  3. TRAMADOL. [Suspect]
     Active Substance: TRAMADOL
  4. PARACETAMOL [Suspect]
     Active Substance: ACETAMINOPHEN
  5. DICLOFENAC [Suspect]
     Active Substance: DICLOFENAC

REACTIONS (1)
  - Completed suicide [Fatal]
